FAERS Safety Report 5767749-X (Version None)
Quarter: 2008Q2

REPORT INFORMATION
  Report Type: 
  Country: None (occurrence: None)
  Receive Date: 20080610
  Receipt Date: 20080602
  Transmission Date: 20081010
  Serious: Yes (Disabling, Other)
  Sender: FDA-Public Use
  Company Number: 144-21880-08050941

PATIENT
  Age: 52 Year
  Sex: Female

DRUGS (1)
  1. REVLIMID [Suspect]
     Indication: ACUTE MYELOID LEUKAEMIA
     Dosage: 10 MG, 1 IN 1 D, ORAL
     Route: 048
     Dates: start: 20080408, end: 20080429

REACTIONS (1)
  - HEPATOTOXICITY [None]
